FAERS Safety Report 5473138-8 (Version None)
Quarter: 2007Q4

REPORT INFORMATION
  Report Type: 
  Country: None (occurrence: None)
  Receive Date: 20071001
  Receipt Date: 20070924
  Transmission Date: 20080405
  Serious: Yes (Life-Threatening)
  Sender: FDA-Public Use
  Company Number: US-GENENTECH-248326

PATIENT
  Sex: Female

DRUGS (5)
  1. LUCENTIS [Suspect]
     Indication: RETINAL NEOVASCULARISATION
     Dosage: 0.5 MG, 1/MONTH
     Route: 031
     Dates: start: 20060809, end: 20070920
  2. PEPCID [Concomitant]
     Indication: DRUG USE FOR UNKNOWN INDICATION
     Dosage: UNK, PRN
  3. SYNTHROID [Concomitant]
     Indication: DRUG USE FOR UNKNOWN INDICATION
     Dosage: 50 UNK, QD
  4. LISINOPRIL [Concomitant]
     Indication: DRUG USE FOR UNKNOWN INDICATION
     Dosage: UNK, QD
  5. PAXIL [Concomitant]
     Indication: DRUG USE FOR UNKNOWN INDICATION
     Dosage: UNK, QD

REACTIONS (1)
  - CEREBROVASCULAR ACCIDENT [None]
